FAERS Safety Report 12464701 (Version 1)
Quarter: 2016Q2

REPORT INFORMATION
  Report Type: Spontaneous
  Country: US (occurrence: US)
  Receive Date: 20160614
  Receipt Date: 20160614
  Transmission Date: 20160815
  Serious: No
  Sender: FDA-Public Use
  Company Number: US-009507513-1606USA001033

PATIENT
  Sex: Male

DRUGS (7)
  1. COPEGUS [Suspect]
     Active Substance: RIBAVIRIN
     Indication: HEPATIC CIRRHOSIS
     Dosage: 400 MG EVERY AM AND 600 MG EVERY PM (1000 MG)
     Route: 048
  2. EPOGEN [Concomitant]
     Active Substance: ERYTHROPOIETIN
     Dosage: 1 ML UNDER THE SKIN FORM STRENGTH: 40000 UNIT/ML (1ML,1 IN 7 D)
     Route: 058
  3. VICTRELIS [Suspect]
     Active Substance: BOCEPREVIR
     Indication: PRODUCT USED FOR UNKNOWN INDICATION
     Dosage: 800 MG, 1 IN 8 HR
     Route: 048
  4. PEGASYS [Suspect]
     Active Substance: PEGINTERFERON ALFA-2A
     Indication: CHRONIC HEPATITIS C
     Dosage: 180 MICROGRAM, 1 IN 1 WK
     Route: 058
     Dates: start: 20130712, end: 20131002
  5. PEGASYS [Suspect]
     Active Substance: PEGINTERFERON ALFA-2A
     Indication: HEPATIC CIRRHOSIS
     Dosage: 135 MICROGRAM, 1 IN 1 WK
     Route: 058
     Dates: start: 20131002, end: 20131021
  6. CELEXA [Concomitant]
     Active Substance: CITALOPRAM HYDROBROMIDE
     Dosage: 2 TABLETS BY MOUTH ONCE DAILY (10 MG, 1 IN 1 D)
     Route: 048
  7. COPEGUS [Suspect]
     Active Substance: RIBAVIRIN
     Indication: CHRONIC HEPATITIS C
     Dosage: 2 TABLET BY MOUTH DAILY (400 MG,1 IN 1 D)
     Route: 048

REACTIONS (10)
  - Spider naevus [Unknown]
  - Carbon dioxide increased [Unknown]
  - Blood albumin decreased [Unknown]
  - Fatigue [Unknown]
  - Dyspnoea exertional [Unknown]
  - Aspartate aminotransferase increased [Unknown]
  - Blood glucose increased [Unknown]
  - Anion gap increased [Unknown]
  - Blood calcium decreased [Unknown]
  - Hepatosplenomegaly [Unknown]
